FAERS Safety Report 18062690 (Version 1)
Quarter: 2020Q3

REPORT INFORMATION
  Report Type: Spontaneous
  Country: GB (occurrence: GB)
  Receive Date: 20200723
  Receipt Date: 20200723
  Transmission Date: 20201103
  Serious: Yes (Other)
  Sender: FDA-Public Use
  Company Number: NVSC2020GB206917

PATIENT
  Age: 79 Year
  Sex: Male

DRUGS (2)
  1. BRINZOLAMIDE/BRIMONIDINE TARTRATE [Suspect]
     Active Substance: BRIMONIDINE TARTRATE\BRINZOLAMIDE
     Indication: OPEN ANGLE GLAUCOMA
     Dosage: UNK
     Route: 065
  2. BIMATOPROST;TIMOLOL [Suspect]
     Active Substance: BIMATOPROST\TIMOLOL
     Indication: OPEN ANGLE GLAUCOMA
     Dosage: UNK
     Route: 065

REACTIONS (2)
  - Uveitis [Not Recovered/Not Resolved]
  - Choroidal effusion [Not Recovered/Not Resolved]
